FAERS Safety Report 5216391-8 (Version None)
Quarter: 2007Q1

REPORT INFORMATION
  Report Type: 
  Country: None (occurrence: None)
  Receive Date: 20061124
  Receipt Date: 20060919
  Transmission Date: 20070707
  Serious: Yes (Other)
  Sender: FDA-Public Use
  Company Number: WAES 0609USA04313

PATIENT
  Age: 58 Year
  Sex: Female

DRUGS (2)
  1. VYTORIN [Suspect]
  2. GLUCOPHAGE [Concomitant]

REACTIONS (1)
  - BLOOD CREATINE PHOSPHOKINASE INCREASED [None]
